FAERS Safety Report 20917612 (Version 7)
Quarter: 2023Q1

REPORT INFORMATION
  Report Type: Spontaneous
  Country: US (occurrence: US)
  Receive Date: 20220606
  Receipt Date: 20230202
  Transmission Date: 20230417
  Serious: Yes (Other)
  Sender: FDA-Public Use
  Company Number: US-BRISTOL-MYERS SQUIBB COMPANY-2022-046079

PATIENT
  Age: 57 Year
  Sex: Female

DRUGS (3)
  1. REVLIMID [Suspect]
     Active Substance: LENALIDOMIDE
     Indication: Plasma cell myeloma
     Route: 048
     Dates: start: 20201109
  2. REVLIMID [Suspect]
     Active Substance: LENALIDOMIDE
     Dosage: DAILY
     Route: 048
     Dates: start: 202101
  3. REVLIMID [Suspect]
     Active Substance: LENALIDOMIDE
     Dosage: 10 UNITS NOT SPECIFIED OTHER
     Route: 048
     Dates: start: 202010

REACTIONS (8)
  - Pain in extremity [Unknown]
  - Intestinal haemorrhage [Unknown]
  - Constipation [Unknown]
  - Diarrhoea [Not Recovered/Not Resolved]
  - Rhinorrhoea [Unknown]
  - Fatigue [Unknown]
  - Abdominal pain upper [Unknown]
  - Gastrointestinal disorder [Unknown]

NARRATIVE: CASE EVENT DATE: 20220503
